FAERS Safety Report 8008068-0 (Version None)
Quarter: 2011Q4

REPORT INFORMATION
  Report Type: 
  Country: None (occurrence: None)
  Receive Date: 20111227
  Receipt Date: 20111214
  Transmission Date: 20120403
  Serious: Yes (Hospitalization)
  Sender: FDA-Public Use
  Company Number: CH-SANOFI-AVENTIS-2011SA082120

PATIENT
  Age: 64 Year
  Sex: Male
  Weight: 67 kg

DRUGS (7)
  1. ARAVA [Suspect]
     Route: 048
     Dates: start: 20060918, end: 20111001
  2. PANTOPRAZOLE SODIUM [Concomitant]
  3. ZOLPIDEM [Concomitant]
  4. DE-URSIL [Concomitant]
  5. MABTHERA [Concomitant]
     Dosage: 1 PER 4 TOTAL
     Dates: start: 20080101, end: 20101029
  6. PREDNISONE [Concomitant]
     Dates: end: 20111001
  7. ATACAND HCT [Concomitant]

REACTIONS (3)
  - EOSINOPHILIA [None]
  - PLEURAL EFFUSION [None]
  - PERICARDIAL EFFUSION [None]
